FAERS Safety Report 9959012 (Version 1)
Quarter: 2014Q1

REPORT INFORMATION
  Report Type: Spontaneous
  Country: US (occurrence: US)
  Receive Date: 20140305
  Receipt Date: 20140305
  Transmission Date: 20141002
  Serious: No
  Sender: FDA-Public Use
  Company Number: US-ABBVIE-13P-163-1103937-00

PATIENT
  Age: 76 Year
  Sex: Male
  Weight: 78.54 kg

DRUGS (4)
  1. HUMIRA [Suspect]
     Indication: COLITIS ULCERATIVE
     Route: 058
     Dates: start: 20120509
  2. MESALAMINE [Concomitant]
     Indication: BLOOD CHOLESTEROL INCREASED
  3. GEMFIBROZIL [Concomitant]
     Indication: BLOOD CHOLESTEROL INCREASED
  4. ROSUVASTATIN [Concomitant]
     Indication: BLOOD CHOLESTEROL INCREASED

REACTIONS (1)
  - Incorrect dose administered [Not Recovered/Not Resolved]
